FAERS Safety Report 14206600 (Version 2)
Quarter: 2017Q4

REPORT INFORMATION
  Report Type: Spontaneous
  Country: GB (occurrence: GB)
  Receive Date: 20171120
  Receipt Date: 20171204
  Transmission Date: 20180321
  Serious: Yes (Hospitalization)
  Sender: FDA-Public Use
  Company Number: GB-MYLANLABS-2017M1073748

PATIENT
  Sex: Male

DRUGS (2)
  1. CLOZARIL [Suspect]
     Active Substance: CLOZAPINE
     Indication: SCHIZOPHRENIA
     Dosage: 250 MG, QD
     Route: 048
     Dates: start: 20050210
  2. CLOZARIL [Suspect]
     Active Substance: CLOZAPINE
     Dosage: UNK
     Route: 048

REACTIONS (7)
  - Overdose [Recovering/Resolving]
  - White blood cell count increased [Unknown]
  - High density lipoprotein decreased [Unknown]
  - Treatment noncompliance [Not Recovered/Not Resolved]
  - Blood cholesterol decreased [Unknown]
  - Neutrophil count increased [Unknown]
  - Mental disorder [Not Recovered/Not Resolved]
